FAERS Safety Report 8815131 (Version 1)
Quarter: 2012Q4

REPORT INFORMATION
  Report Type: Report from Study
  Country: US (occurrence: US)
  Receive Date: 20120928
  Receipt Date: 20120928
  Transmission Date: 20130627
  Serious: Yes (Hospitalization)
  Sender: FDA-Public Use
  Company Number: US-JNJFOC-20120908337

PATIENT
  Age: 53 None
  Sex: Female
  Weight: 77.11 kg

DRUGS (2)
  1. REMICADE [Suspect]
     Indication: CROHN^S DISEASE
     Route: 042
     Dates: start: 2011
  2. AMBIEN [Concomitant]
     Indication: INSOMNIA
     Route: 048

REACTIONS (5)
  - Bone disorder [Not Recovered/Not Resolved]
  - Paraesthesia [Recovering/Resolving]
  - Impaired healing [Not Recovered/Not Resolved]
  - Candidiasis [Recovering/Resolving]
  - Stomatitis [Recovering/Resolving]
